FAERS Safety Report 8394979-3 (Version None)
Quarter: 2012Q2

REPORT INFORMATION
  Report Type: 
  Country: None (occurrence: None)
  Receive Date: 20120530
  Receipt Date: 20120316
  Transmission Date: 20120825
  Serious: No
  Sender: FDA-Public Use
  Company Number: US-GLAXOSMITHKLINE-A0971083A

PATIENT
  Age: 43 Year
  Sex: Female

DRUGS (4)
  1. TRACLEER [Concomitant]
     Dosage: 125U TWICE PER DAY
     Route: 065
  2. REVATIO [Concomitant]
     Dosage: 20MG UNKNOWN
     Route: 065
  3. FLOLAN [Suspect]
     Indication: COR PULMONALE CHRONIC
     Dosage: 16.9NGKM UNKNOWN
     Route: 065
     Dates: start: 20000516
  4. COUMADIN [Concomitant]
     Dosage: 5MG UNKNOWN
     Route: 065

REACTIONS (2)
  - DIZZINESS [None]
  - TUNNEL VISION [None]
